APPROVED DRUG PRODUCT: METHYLPREDNISOLONE ACETATE
Active Ingredient: METHYLPREDNISOLONE ACETATE
Strength: 40MG/ML
Dosage Form/Route: INJECTABLE;INJECTION
Application: A214297 | Product #001 | TE Code: AB
Applicant: PH HEALTH LTD
Approved: Jan 21, 2022 | RLD: No | RS: No | Type: RX